FAERS Safety Report 9463490 (Version 1)
Quarter: 2013Q3

REPORT INFORMATION
  Report Type: Report from Study
  Country: US (occurrence: US)
  Receive Date: 20130819
  Receipt Date: 20130819
  Transmission Date: 20140515
  Serious: Yes (Hospitalization)
  Sender: FDA-Public Use
  Company Number: US-MERCK-1308USA003001

PATIENT
  Sex: 0

DRUGS (4)
  1. REBETOL [Suspect]
     Indication: HEPATITIS C
     Route: 048
  2. PEGINTRON [Suspect]
     Indication: HEPATITIS C
  3. VICTRELIS [Suspect]
     Indication: HEPATITIS C
     Route: 048
  4. TELAPREVIR [Suspect]
     Indication: HEPATITIS C

REACTIONS (1)
  - Adverse event [Unknown]
